FAERS Safety Report 6817324-0 (Version None)
Quarter: 2010Q3

REPORT INFORMATION
  Report Type: 
  Country: None (occurrence: None)
  Receive Date: 20100706
  Receipt Date: 20100629
  Transmission Date: 20110219
  Serious: Yes (Other)
  Sender: FDA-Public Use
  Company Number: NL-ROCHE-712683

PATIENT
  Sex: Female
  Weight: 70 kg

DRUGS (1)
  1. ISOTRETINOIN [Suspect]
     Indication: ACNE
     Dosage: ROUTE: PER OS
     Route: 048
     Dates: start: 20100315

REACTIONS (4)
  - DEPRESSED MOOD [None]
  - FATIGUE [None]
  - HEADACHE [None]
  - SUICIDAL IDEATION [None]
